FAERS Safety Report 6693120-2 (Version None)
Quarter: 2010Q2

REPORT INFORMATION
  Report Type: 
  Country: None (occurrence: None)
  Receive Date: 20100420
  Receipt Date: 20100405
  Transmission Date: 20101027
  Serious: Yes (Other)
  Sender: FDA-Public Use
  Company Number: 009815

PATIENT
  Sex: Female
  Weight: 58.6 kg

DRUGS (3)
  1. CIMZIA [Suspect]
     Indication: CROHN'S DISEASE
     Dosage: (SUBCUTANEOUS)
     Route: 058
     Dates: start: 20080101
  2. VICODIN [Concomitant]
  3. DIPHENOXYLATE [Concomitant]

REACTIONS (1)
  - PSORIASIS [None]
